FAERS Safety Report 25169143 (Version 3)
Quarter: 2025Q2

REPORT INFORMATION
  Report Type: Report from Study
  Country: US (occurrence: US)
  Receive Date: 20250407
  Receipt Date: 20250428
  Transmission Date: 20250717
  Serious: No
  Sender: OTSUKA
  Company Number: US-MMM-Otsuka-JR4WPT7N

PATIENT
  Sex: Female

DRUGS (9)
  1. TOLVAPTAN [Suspect]
     Active Substance: TOLVAPTAN
     Indication: Congenital cystic kidney disease
     Dosage: 45 MG, QD  (IN THE MORNING/AM)
     Route: 048
     Dates: start: 20241113
  2. TOLVAPTAN [Suspect]
     Active Substance: TOLVAPTAN
     Dosage: 15 MG, QD (IN THE EVENING/AT NIGHT)
     Route: 048
     Dates: start: 20241022
  3. ASPIRIN [Concomitant]
     Active Substance: ASPIRIN
     Indication: Product used for unknown indication
     Route: 065
  4. AMLODIPINE [Concomitant]
     Active Substance: AMLODIPINE BESYLATE
     Indication: Blood pressure measurement
     Dosage: 5 MG, QD
     Route: 065
  5. AMLODIPINE [Concomitant]
     Active Substance: AMLODIPINE BESYLATE
     Indication: Protein urine
  6. LABETALOL [Concomitant]
     Active Substance: LABETALOL
     Indication: Blood pressure measurement
     Dosage: 100 MG, BID (TWICE A DAY)
     Route: 065
  7. LABETALOL [Concomitant]
     Active Substance: LABETALOL
     Indication: Protein urine
  8. LOSARTAN [Concomitant]
     Active Substance: LOSARTAN
     Indication: Blood pressure measurement
     Dosage: 50 MG, BID (TWICE A DAY)
     Route: 065
  9. LOSARTAN [Concomitant]
     Active Substance: LOSARTAN
     Indication: Protein urine

REACTIONS (1)
  - No adverse event [Unknown]
